FAERS Safety Report 6736416-8 (Version None)
Quarter: 2010Q2

REPORT INFORMATION
  Report Type: 
  Country: None (occurrence: None)
  Receive Date: 20100521
  Receipt Date: 20100511
  Transmission Date: 20101027
  Serious: Yes (Other)
  Sender: FDA-Public Use
  Company Number: JP-MERCK-1005USA02366

PATIENT
  Age: 60 Year
  Sex: Female

DRUGS (2)
  1. MAXALT-MLT [Suspect]
     Indication: MIGRAINE
     Route: 048
  2. NEW SEDES [Concomitant]
     Route: 048

REACTIONS (2)
  - CAROTID ARTERY DISSECTION [None]
  - MYOCARDIAL INFARCTION [None]
